FAERS Safety Report 23581736 (Version 1)
Quarter: 2024Q1

REPORT INFORMATION
  Report Type: Spontaneous
  Country: US (occurrence: US)
  Receive Date: 20240229
  Receipt Date: 20240229
  Transmission Date: 20240410
  Serious: No
  Sender: FDA-Public Use
  Company Number: US-BoehringerIngelheim-2024-BI-011685

PATIENT
  Age: 69 Year
  Sex: Female

DRUGS (2)
  1. OFEV [Suspect]
     Active Substance: NINTEDANIB
     Indication: Interstitial lung disease
     Dates: start: 20240125
  2. Orencia infusion [Concomitant]
     Indication: Rheumatoid arthritis

REACTIONS (4)
  - Constipation [Not Recovered/Not Resolved]
  - White blood cell count increased [Unknown]
  - Urinary tract infection [Unknown]
  - Cystitis [Unknown]

NARRATIVE: CASE EVENT DATE: 20240201
